FAERS Safety Report 8299517-1 (Version None)
Quarter: 2012Q2

REPORT INFORMATION
  Report Type: 
  Country: None (occurrence: None)
  Receive Date: 20120419
  Receipt Date: 20120416
  Transmission Date: 20120825
  Serious: Yes (Other)
  Sender: FDA-Public Use
  Company Number: US-PFIZER INC-2012093993

PATIENT
  Sex: Male
  Weight: 81.633 kg

DRUGS (4)
  1. EFFEXOR [Suspect]
     Indication: DEPRESSION
     Dosage: 150 MG, DAILY
  2. EFFEXOR [Suspect]
     Dosage: 37.5 MG, 2X/DAY
     Dates: end: 20120409
  3. CRESTOR [Concomitant]
     Indication: BLOOD CHOLESTEROL INCREASED
     Dosage: 75 MG, DAILY
  4. VERAPAMIL [Concomitant]
     Indication: HYPERTENSION
     Dosage: 240 MG DAILY

REACTIONS (6)
  - HYPERHIDROSIS [None]
  - HIGH DENSITY LIPOPROTEIN DECREASED [None]
  - LOW DENSITY LIPOPROTEIN INCREASED [None]
  - SEMEN VOLUME DECREASED [None]
  - HYPERTENSION [None]
  - BLOOD CHOLESTEROL INCREASED [None]
